FAERS Safety Report 17058533 (Version 1)
Quarter: 2019Q4

REPORT INFORMATION
  Report Type: Spontaneous
  Country: US (occurrence: US)
  Receive Date: 20191023
  Receipt Date: 20191023
  Transmission Date: 20200122
  Serious: Yes (Hospitalization)
  Sender: FDA-Public Use
  Company Number: None

PATIENT
  Age: 65 Year
  Sex: Female

DRUGS (23)
  1. ATORVASTATIN [Concomitant]
     Active Substance: ATORVASTATIN
  2. LOSARTAN/HCT [Concomitant]
     Active Substance: HYDROCHLOROTHIAZIDE\LOSARTAN POTASSIUM
  3. VIBERZI [Concomitant]
     Active Substance: ELUXADOLINE
  4. HUMIRA [Suspect]
     Active Substance: ADALIMUMAB
     Indication: IRRITABLE BOWEL SYNDROME
     Route: 058
     Dates: start: 20180914
  5. GABAPENTIN. [Concomitant]
     Active Substance: GABAPENTIN
  6. AZITHROMYCIN ANHYDROUS. [Concomitant]
     Active Substance: AZITHROMYCIN ANHYDROUS
  7. LOSARTAN POT [Concomitant]
     Active Substance: LOSARTAN POTASSIUM
  8. METFORMIN [Concomitant]
     Active Substance: METFORMIN HYDROCHLORIDE
  9. HYDROCHLOROT [Concomitant]
     Active Substance: HYDROCHLOROTHIAZIDE
  10. EZETIMIBE. [Concomitant]
     Active Substance: EZETIMIBE
  11. LEVOFTHYROXIN [Concomitant]
  12. LIPITOR [Concomitant]
     Active Substance: ATORVASTATIN CALCIUM
  13. OMEPORAZOLE [Concomitant]
  14. MEMANTINE. [Concomitant]
     Active Substance: MEMANTINE
  15. MORPHINE SUL [Concomitant]
     Active Substance: MORPHINE SULFATE
  16. SYNTHROID [Concomitant]
     Active Substance: LEVOTHYROXINE SODIUM
  17. TRAZODONE [Concomitant]
     Active Substance: TRAZODONE HYDROCHLORIDE
  18. ZETIA [Concomitant]
     Active Substance: EZETIMIBE
  19. HUMIRA [Suspect]
     Active Substance: ADALIMUMAB
     Indication: DIARRHOEA
     Route: 058
     Dates: start: 20180914
  20. ASPIRIN. [Concomitant]
     Active Substance: ASPIRIN
  21. CELEXA [Concomitant]
     Active Substance: CITALOPRAM HYDROBROMIDE
  22. CITALOPRAM [Concomitant]
     Active Substance: CITALOPRAM HYDROBROMIDE
  23. DICYCLOMINE [Concomitant]
     Active Substance: DICYCLOMINE HYDROCHLORIDE

REACTIONS (1)
  - Pneumonia [None]
